FAERS Safety Report 12851542 (Version 1)
Quarter: 2016Q4

REPORT INFORMATION
  Report Type: Spontaneous
  Country: US (occurrence: US)
  Receive Date: 20161016
  Receipt Date: 20161016
  Transmission Date: 20170207
  Serious: No
  Sender: FDA-Public Use
  Company Number: US-LUNDBECK-DKLU2020948

PATIENT
  Sex: Male

DRUGS (4)
  1. NORTHERA [Suspect]
     Active Substance: DROXIDOPA
     Route: 065
  2. NORTHERA [Suspect]
     Active Substance: DROXIDOPA
     Indication: PRODUCT USED FOR UNKNOWN INDICATION
     Dosage: SCHEDULE B (TITRATING)
     Route: 065
     Dates: start: 20161002
  3. NORTHERA [Suspect]
     Active Substance: DROXIDOPA
     Route: 065
  4. CARBIDOPA. [Suspect]
     Active Substance: CARBIDOPA
     Indication: PRODUCT USED FOR UNKNOWN INDICATION
     Route: 065
     Dates: start: 201610

REACTIONS (4)
  - Condition aggravated [Unknown]
  - Urinary incontinence [Unknown]
  - Muscular weakness [Unknown]
  - Asthenia [Unknown]
